FAERS Safety Report 12402063 (Version 2)
Quarter: 2016Q3

REPORT INFORMATION
  Report Type: Spontaneous
  Country: US (occurrence: US)
  Receive Date: 20160525
  Receipt Date: 20160721
  Transmission Date: 20161109
  Serious: Yes (Death, Other)
  Sender: FDA-Public Use
  Company Number: US-INSYS THERAPEUTICS, INC-INS201605-000230

PATIENT
  Age: 56 Year
  Sex: Male

DRUGS (4)
  1. ALPRAZOLAM. [Suspect]
     Active Substance: ALPRAZOLAM
  2. FENTANYL. [Suspect]
     Active Substance: FENTANYL
     Indication: PRODUCT USED FOR UNKNOWN INDICATION
  3. DIPHENHYDRAMINE. [Suspect]
     Active Substance: DIPHENHYDRAMINE
  4. LORAZEPAM. [Suspect]
     Active Substance: LORAZEPAM

REACTIONS (3)
  - Acute respiratory distress syndrome [Unknown]
  - Bradycardia [Unknown]
  - Toxicity to various agents [Fatal]

NARRATIVE: CASE EVENT DATE: 20140515
